FAERS Safety Report 8585759-4 (Version None)
Quarter: 2012Q3

REPORT INFORMATION
  Report Type: 
  Country: None (occurrence: None)
  Receive Date: 20120810
  Receipt Date: 20120731
  Transmission Date: 20120928
  Serious: Yes (Hospitalization)
  Sender: FDA-Public Use
  Company Number: US-BAYER-2012-045880

PATIENT
  Age: 18 Year
  Sex: Female

DRUGS (16)
  1. YASMIN [Suspect]
  2. ASPIRIN [Concomitant]
  3. ABILIFY [Concomitant]
     Dosage: 10 MG, 2 TABLETS, EVERY NIGHT
     Route: 048
  4. XOPENEX [Concomitant]
  5. INTRAVENOUS FLUID [Concomitant]
  6. SINGULAIR [Concomitant]
     Dosage: 10 MG, 1 TABLET, DAILY
     Route: 048
  7. YAZ [Suspect]
  8. TOPAMAX [Concomitant]
     Dosage: 100 MG, 1 TABLET, BID
     Route: 048
  9. PROAIR HFA [Concomitant]
  10. WELLBUTRIN [Concomitant]
  11. NITROGLYCERIN [Concomitant]
     Route: 060
  12. SYNTHROID [Concomitant]
     Dosage: 0.150 MG, 2 TABLETS, DAILY
     Route: 048
  13. PREVACID [Concomitant]
     Dosage: 30 MG, 1 CAPSULE, OM
  14. OXYGEN [Concomitant]
     Dosage: 2 L
     Route: 045
  15. ZYRTEC [Concomitant]
     Dosage: 10 MG, 1 TABLET, EVERY NIGHT
     Route: 048
  16. VASOTON [Concomitant]

REACTIONS (9)
  - PAIN [None]
  - ANXIETY [None]
  - FEAR [None]
  - DEEP VEIN THROMBOSIS [None]
  - ANHEDONIA [None]
  - INJURY [None]
  - PULMONARY EMBOLISM [None]
  - QUALITY OF LIFE DECREASED [None]
  - EMOTIONAL DISTRESS [None]
